FAERS Safety Report 5936321-0 (Version None)
Quarter: 2008Q4

REPORT INFORMATION
  Report Type: 
  Country: None (occurrence: None)
  Receive Date: 20081029
  Receipt Date: 20081029
  Transmission Date: 20090506
  Serious: Yes (Hospitalization, Other)
  Sender: FDA-Public Use
  Company Number: None

PATIENT
  Age: 73 Year
  Sex: Male
  Weight: 95.2554 kg

DRUGS (2)
  1. ALTACE [Suspect]
     Indication: CORONARY ARTERIAL STENT INSERTION
  2. ATENOLOL [Suspect]

REACTIONS (8)
  - CORONARY ARTERY OCCLUSION [None]
  - COUGH [None]
  - DIZZINESS [None]
  - DYSPNOEA [None]
  - HEART RATE IRREGULAR [None]
  - PROSTATIC DISORDER [None]
  - SYNCOPE [None]
  - URINARY RETENTION [None]
